FAERS Safety Report 7619229-4 (Version None)
Quarter: 2011Q3

REPORT INFORMATION
  Report Type: 
  Country: None (occurrence: None)
  Receive Date: 20110718
  Receipt Date: 20110707
  Transmission Date: 20111222
  Serious: Yes (Other)
  Sender: FDA-Public Use
  Company Number: US-RB-019737-10

PATIENT
  Age: 50 Year
  Sex: Female

DRUGS (1)
  1. SUBOXONE [Suspect]
     Indication: PRODUCT USED FOR UNKNOWN INDICATION
     Dosage: DOSAGE INFORMATION UNKNOWN- SUBLINGUAL FILM
     Route: 065

REACTIONS (8)
  - PAIN [None]
  - CONTUSION [None]
  - CATARACT [None]
  - ABDOMINAL PAIN UPPER [None]
  - PANIC ATTACK [None]
  - OEDEMA PERIPHERAL [None]
  - DRUG DEPENDENCE [None]
  - CONVULSION [None]
